FAERS Safety Report 8150899-0 (Version None)
Quarter: 2012Q1

REPORT INFORMATION
  Report Type: 
  Country: None (occurrence: None)
  Receive Date: 20120220
  Receipt Date: 20120213
  Transmission Date: 20120608
  Serious: Yes (Hospitalization, Other)
  Sender: FDA-Public Use
  Company Number: PHHY2011US55704

PATIENT
  Sex: Female

DRUGS (6)
  1. EXJADE [Suspect]
     Indication: IRON OVERLOAD
     Dosage: 1000 MG, DAILY
     Route: 048
     Dates: start: 20070807
  2. COUMADIN [Concomitant]
     Indication: THROMBOSIS PROPHYLAXIS
     Dosage: 1 MG, DAILY
  3. FOLIC ACID [Concomitant]
     Dosage: 1 MG, DAILY
  4. AMOXICILLIN [Concomitant]
     Dosage: 250 MG, BID
  5. MIRALAX [Concomitant]
     Indication: CONSTIPATION
     Dosage: UNK UKN, PRN
  6. VENTOLIN [Concomitant]
     Indication: ASTHMA
     Dosage: 180 MG, PRN

REACTIONS (7)
  - LIPASE INCREASED [None]
  - ALANINE AMINOTRANSFERASE INCREASED [None]
  - ASPARTATE AMINOTRANSFERASE INCREASED [None]
  - CHOLECYSTITIS [None]
  - BLOOD BILIRUBIN INCREASED [None]
  - PANCREATITIS [None]
  - CHOLELITHIASIS [None]
